FAERS Safety Report 18084616 (Version 1)
Quarter: 2020Q3

REPORT INFORMATION
  Report Type: Report from Study
  Country: BR (occurrence: BR)
  Receive Date: 20200728
  Receipt Date: 20200728
  Transmission Date: 20201103
  Serious: Yes (Other)
  Sender: FDA-Public Use
  Company Number: PHHY2018BR133153

PATIENT
  Age: 67 Year
  Sex: Male
  Weight: 98 kg

DRUGS (3)
  1. COSENTYX [Suspect]
     Active Substance: SECUKINUMAB
     Dosage: 300 MG, QMO
     Route: 058
     Dates: start: 20180424
  2. COSENTYX [Suspect]
     Active Substance: SECUKINUMAB
     Indication: PSORIATIC ARTHROPATHY
     Dosage: UNK
     Route: 065
     Dates: start: 20180125
  3. COSENTYX [Suspect]
     Active Substance: SECUKINUMAB
     Dosage: 300 MG, QMO
     Route: 058
     Dates: start: 20181016

REACTIONS (10)
  - Pruritus [Recovered/Resolved]
  - Panic reaction [Unknown]
  - Malaise [Recovered/Resolved]
  - SARS-CoV-2 test positive [Recovered/Resolved]
  - Pain [Recovered/Resolved]
  - Skin lesion [Unknown]
  - Depressed mood [Recovered/Resolved]
  - Headache [Recovered/Resolved]
  - Anosmia [Recovered/Resolved]
  - Ageusia [Recovered/Resolved]

NARRATIVE: CASE EVENT DATE: 20200425
